FAERS Safety Report 24972272 (Version 2)
Quarter: 2025Q2

REPORT INFORMATION
  Report Type: Report from Study
  Country: CA (occurrence: CA)
  Receive Date: 20250214
  Receipt Date: 20250421
  Transmission Date: 20250717
  Serious: Yes (Hospitalization)
  Sender: ABBVIE
  Company Number: CA-ABBVIE-6127098

PATIENT
  Sex: Female

DRUGS (3)
  1. MAVYRET [Suspect]
     Active Substance: GLECAPREVIR\PIBRENTASVIR
     Indication: Chronic hepatitis C
     Dosage: FORM STRENGTH 100/40 MG : 3 TABLETS ONCE DAILY FOR 8 WEEKS
     Route: 048
     Dates: start: 20241205
  2. MAVYRET [Suspect]
     Active Substance: GLECAPREVIR\PIBRENTASVIR
     Indication: Chronic hepatitis C
     Dosage: FORM STRENGTH 100/40 MG : 3 TABLETS ONCE DAILY FOR 8 WEEKS
     Route: 048
  3. SUBOXONE [Concomitant]
     Active Substance: BUPRENORPHINE HYDROCHLORIDE\NALOXONE HYDROCHLORIDE
     Indication: Product used for unknown indication

REACTIONS (2)
  - Overdose [Unknown]
  - Malaise [Recovering/Resolving]
